FAERS Safety Report 7973336-5 (Version None)
Quarter: 2011Q4

REPORT INFORMATION
  Report Type: 
  Country: None (occurrence: None)
  Receive Date: 20111213
  Receipt Date: 20110608
  Transmission Date: 20120403
  Serious: No
  Sender: FDA-Public Use
  Company Number: US-AMGEN-USASP2011029833

PATIENT
  Sex: Male

DRUGS (4)
  1. VITAMIN B12                        /00056201/ [Concomitant]
  2. ARANESP [Suspect]
     Indication: RENAL FAILURE CHRONIC
     Dosage: UNK
  3. PROGRAF [Concomitant]
  4. CELLCEPT [Concomitant]

REACTIONS (3)
  - ANAEMIA [None]
  - DRUG INEFFECTIVE [None]
  - THERAPEUTIC RESPONSE DECREASED [None]
